FAERS Safety Report 5527899-X (Version None)
Quarter: 2007Q4

REPORT INFORMATION
  Report Type: 
  Country: None (occurrence: None)
  Receive Date: 20071126
  Receipt Date: 20071126
  Transmission Date: 20080405
  Serious: Yes (Life-Threatening, Hospitalization)
  Sender: FDA-Public Use
  Company Number: None

PATIENT
  Age: 46 Year
  Sex: Male
  Weight: 86.1834 kg

DRUGS (1)
  1. CHANTIX [Suspect]
     Dosage: 1MG  TWICE A DAY  PO
     Route: 048
     Dates: start: 20071107, end: 20071117

REACTIONS (1)
  - CONVULSION [None]
